FAERS Safety Report 4765643-4 (Version None)
Quarter: 2005Q3

REPORT INFORMATION
  Report Type: 
  Country: None (occurrence: None)
  Receive Date: 20050906
  Receipt Date: 20050829
  Transmission Date: 20060218
  Serious: Yes (Hospitalization, Other)
  Sender: FDA-Public Use
  Company Number: 2005088826

PATIENT
  Age: 72 Year
  Sex: Female
  Weight: 64 kg

DRUGS (8)
  1. SORTIS (ATORVASTATIN) [Suspect]
     Indication: HYPERLIPIDAEMIA
     Dosage: 20 MG, ORAL
     Route: 048
     Dates: start: 20020101, end: 20030101
  2. ASPIRIN [Concomitant]
  3. CONCOR (BISOPROLOLMFUMARATE) [Concomitant]
  4. XANEF (ENALAPRIL MLEATE) [Concomitant]
  5. LEVOTHYROXINE SODIUM [Concomitant]
  6. DOXYCYCLINE [Concomitant]
  7. HUMALOG [Concomitant]
  8. LANTUS (INSULIN GARGINE) [Concomitant]

REACTIONS (10)
  - ANOREXIA [None]
  - AUTOANTIBODY POSITIVE [None]
  - CHOLECYSTITIS CHRONIC [None]
  - EPSTEIN-BARR VIRUS ANTIBODY POSITIVE [None]
  - HEPATIC FIBROSIS [None]
  - HEPATIC NECROSIS [None]
  - HEPATITIS TOXIC [None]
  - HYPERGLYCAEMIA [None]
  - PANCYTOPENIA [None]
  - URINARY TRACT INFECTION [None]
